FAERS Safety Report 6099437-7 (Version None)
Quarter: 2009Q1

REPORT INFORMATION
  Report Type: 
  Country: None (occurrence: None)
  Receive Date: 20090226
  Receipt Date: 20090212
  Transmission Date: 20090719
  Serious: Yes (Life-Threatening)
  Sender: FDA-Public Use
  Company Number: 2009S1002647

PATIENT
  Age: 69 Year
  Sex: Male

DRUGS (6)
  1. RISPERIDONE [Suspect]
     Indication: AGITATION
     Dosage: 2.5 MG; DAILY; ORAL
     Route: 048
     Dates: start: 20090108, end: 20090208
  2. RISPERIDONE [Suspect]
     Indication: CONFUSIONAL STATE
     Dosage: 2.5 MG; DAILY; ORAL
     Route: 048
     Dates: start: 20090108, end: 20090208
  3. ARIPIPRAZOLE [Suspect]
     Indication: HYPOGLYCAEMIA
     Dosage: 5 MG; 3 TIMES A DAY; ORAL
     Route: 048
     Dates: start: 20090108
  4. DOMPERIDONE [Concomitant]
  5. GAVISCON [Concomitant]
  6. LANSOPRAZOLE [Concomitant]

REACTIONS (1)
  - HYPOGLYCAEMIA [None]
